FAERS Safety Report 7028890-7 (Version None)
Quarter: 2010Q3

REPORT INFORMATION
  Report Type: 
  Country: None (occurrence: None)
  Receive Date: 20100913
  Receipt Date: 20100902
  Transmission Date: 20110219
  Serious: Yes (Hospitalization, Other)
  Sender: FDA-Public Use
  Company Number: 20091208CINRY1298

PATIENT
  Age: 29 Year
  Sex: Male

DRUGS (6)
  1. CINRYZE [Suspect]
     Indication: HEREDITARY ANGIOEDEMA
     Dosage: (500 UNIT, MONDAY AND WEDNESDAY), INTRAVENOUS; (1000 UNIT, FRIDAYS), INTRAVENOUS
     Dates: start: 20090301
  2. CINRYZE [Suspect]
     Indication: PROPHYLAXIS
     Dosage: (500 UNIT, MONDAY AND WEDNESDAY), INTRAVENOUS; (1000 UNIT, FRIDAYS), INTRAVENOUS
     Dates: start: 20090301
  3. DX-88 (ECALLANTIDE) (INVESTIGATIONAL DRUG) [Suspect]
     Indication: HEREDITARY ANGIOEDEMA
     Dosage: 2 DOSES 4 HOURS APART (AS REQUIRED)
     Dates: start: 20080401
  4. DANAZOL [Concomitant]
  5. NASONEX [Concomitant]
  6. ASTELIN (DIPROPHYLLINE) [Concomitant]

REACTIONS (1)
  - CHRONIC MYELOID LEUKAEMIA [None]
